FAERS Safety Report 14143498 (Version 3)
Quarter: 2018Q2

REPORT INFORMATION
  Report Type: Report from Study
  Country: US (occurrence: US)
  Receive Date: 20171030
  Receipt Date: 20180413
  Transmission Date: 20180711
  Serious: Yes (Other)
  Sender: FDA-Public Use
  Company Number: US-AMGEN-USASL2017146689

PATIENT
  Age: 68 Year
  Sex: Female
  Weight: 78.91 kg

DRUGS (6)
  1. REPATHA [Suspect]
     Active Substance: EVOLOCUMAB
     Indication: HYPERLIPIDAEMIA
  2. REPATHA [Suspect]
     Active Substance: EVOLOCUMAB
     Indication: CORONARY ARTERY DISEASE
  3. ZETIA [Concomitant]
     Active Substance: EZETIMIBE
  4. ZOCOR [Concomitant]
     Active Substance: SIMVASTATIN
  5. REPATHA [Suspect]
     Active Substance: EVOLOCUMAB
     Indication: BLOOD CHOLESTEROL INCREASED
     Dosage: 140 MG, Q2WK
     Route: 065
     Dates: start: 20170926
  6. REPATHA [Suspect]
     Active Substance: EVOLOCUMAB
     Indication: TYPE IIA HYPERLIPIDAEMIA

REACTIONS (10)
  - Myalgia [Recovered/Resolved]
  - Pyrexia [Not Recovered/Not Resolved]
  - Influenza like illness [Recovered/Resolved]
  - Muscle spasms [Unknown]
  - Generalised erythema [Unknown]
  - Tenderness [Unknown]
  - Drug ineffective [Unknown]
  - Dysuria [Unknown]
  - Chest pain [Unknown]
  - Drug intolerance [Unknown]

NARRATIVE: CASE EVENT DATE: 20170927
